FAERS Safety Report 7317587 (Version 8)
Quarter: 2015Q2

REPORT INFORMATION
  Report Type: Spontaneous
  Country: US (occurrence: US)
  Receive Date: 20100312
  Receipt Date: 20150413
  Transmission Date: 20150821
  Serious: Yes (Hospitalization)
  Sender: FDA-Public Use
  Company Number: US-BAYER-201016061NA

PATIENT
  Age: 51 Year
  Sex: Female
  Weight: 49.89 kg

DRUGS (6)
  1. ALTACE [Concomitant]
     Active Substance: RAMIPRIL
     Indication: HYPERTENSION
     Dosage: 2.5 MG, UNK
     Dates: start: 2003
  2. INDERAL [Concomitant]
     Active Substance: PROPRANOLOL HYDROCHLORIDE
     Indication: MIGRAINE
  3. IMITREX [Concomitant]
     Active Substance: SUMATRIPTAN\SUMATRIPTAN SUCCINATE
     Indication: MIGRAINE
     Dosage: AS NEEDED
  4. YASMIN [Suspect]
     Active Substance: DROSPIRENONE\ETHINYL ESTRADIOL
     Dosage: UNK
     Route: 048
     Dates: start: 2001, end: 2003
  5. BLACK COHOSH [Concomitant]
     Active Substance: BLACK COHOSH
     Indication: HOT FLUSH
     Dosage: DAILY
  6. TOPROL XL [Concomitant]
     Active Substance: METOPROLOL SUCCINATE

REACTIONS (3)
  - Myocardial infarction [Unknown]
  - Hypertension [None]
  - Arrhythmia supraventricular [None]

NARRATIVE: CASE EVENT DATE: 20030303
